FAERS Safety Report 8014294-7 (Version None)
Quarter: 2011Q4

REPORT INFORMATION
  Report Type: 
  Country: None (occurrence: None)
  Receive Date: 20111229
  Receipt Date: 20111220
  Transmission Date: 20120403
  Serious: Yes (Other)
  Sender: FDA-Public Use
  Company Number: SE-GLAXOSMITHKLINE-B0772131A

PATIENT

DRUGS (1)
  1. LAMOTRIGINE [Suspect]
     Dosage: 25MG PER DAY

REACTIONS (3)
  - DRUG DISPENSING ERROR [None]
  - MYOCARDIAL INFARCTION [None]
  - CONVULSION [None]
